FAERS Safety Report 19495955 (Version 1)
Quarter: 2021Q3

REPORT INFORMATION
  Report Type: Spontaneous
  Country: US (occurrence: US)
  Receive Date: 20210706
  Receipt Date: 20210706
  Transmission Date: 20211014
  Serious: Yes (Other)
  Sender: FDA-Public Use
  Company Number: US-BAYER-2021-168542

PATIENT
  Sex: Female

DRUGS (1)
  1. MIRENA [Suspect]
     Active Substance: LEVONORGESTREL
     Indication: CONTRACEPTION
     Dosage: 20  ?G PER DAY CONTINUOUSLY
     Route: 015
     Dates: start: 201808, end: 20181029

REACTIONS (3)
  - Device dislocation [Recovered/Resolved]
  - Abdominal pain lower [None]
  - Patient-device incompatibility [None]

NARRATIVE: CASE EVENT DATE: 2018
